FAERS Safety Report 7491410-7 (Version None)
Quarter: 2011Q2

REPORT INFORMATION
  Report Type: 
  Country: None (occurrence: None)
  Receive Date: 20110519
  Receipt Date: 20110506
  Transmission Date: 20111010
  Serious: Yes (Hospitalization, Other)
  Sender: FDA-Public Use
  Company Number: PHEH2008US03557

PATIENT
  Sex: Female

DRUGS (11)
  1. TRAZODONE HCL [Concomitant]
     Dosage: 50 MG, UNK
     Route: 048
     Dates: start: 20030603
  2. EFFEXOR [Concomitant]
  3. AREDIA [Suspect]
     Dosage: 90 MG, UNK
     Route: 042
     Dates: start: 20021001
  4. XANAX [Concomitant]
  5. MIRTAZAPINE [Concomitant]
     Dosage: 15 MG, UNK
     Route: 048
     Dates: start: 20030603
  6. DECADRON [Concomitant]
     Dosage: UNK
     Dates: start: 20021001, end: 20030101
  7. PREMARIN [Concomitant]
  8. RELAFEN [Concomitant]
     Dosage: UNK
  9. ZOMETA [Suspect]
     Dosage: UNK
     Dates: start: 20021001
  10. ZOLOFT [Concomitant]
  11. TOPROL-XL [Concomitant]

REACTIONS (51)
  - ACUTE MYOCARDIAL INFARCTION [None]
  - INFECTION [None]
  - ANXIETY [None]
  - DYSPNOEA [None]
  - HEADACHE [None]
  - CONSTIPATION [None]
  - CHEST DISCOMFORT [None]
  - LACRIMATION INCREASED [None]
  - PERIODONTAL DISEASE [None]
  - ABASIA [None]
  - DEFORMITY [None]
  - ATRIOVENTRICULAR BLOCK FIRST DEGREE [None]
  - HOT FLUSH [None]
  - MUSCULOSKELETAL PAIN [None]
  - HYPERCALCAEMIA [None]
  - OCULAR HYPERAEMIA [None]
  - CHOKING SENSATION [None]
  - ASTHENIA [None]
  - TOOTH ABSCESS [None]
  - PARATHYROID TUMOUR BENIGN [None]
  - LYMPHADENOPATHY [None]
  - DRUG HYPERSENSITIVITY [None]
  - MENSTRUAL DISORDER [None]
  - DIARRHOEA [None]
  - DEPRESSION [None]
  - SPINAL OSTEOARTHRITIS [None]
  - BLOOD PARATHYROID HORMONE INCREASED [None]
  - BACK PAIN [None]
  - CHEST PAIN [None]
  - PAIN [None]
  - VOMITING [None]
  - JOINT STIFFNESS [None]
  - NAUSEA [None]
  - THIRST [None]
  - MUSCLE SPASMS [None]
  - DIZZINESS [None]
  - DENTAL CARIES [None]
  - ELECTROCARDIOGRAM ST-T SEGMENT ABNORMAL [None]
  - DRUG DEPENDENCE [None]
  - PALPITATIONS [None]
  - ABDOMINAL PAIN [None]
  - DYSPHAGIA [None]
  - DECREASED APPETITE [None]
  - LETHARGY [None]
  - ADRENAL ADENOMA [None]
  - THYROID NEOPLASM [None]
  - OSTEONECROSIS OF JAW [None]
  - UPPER RESPIRATORY TRACT INFECTION [None]
  - EYE SWELLING [None]
  - REFLUX LARYNGITIS [None]
  - DYSSTASIA [None]
